FAERS Safety Report 20965022 (Version 2)
Quarter: 2022Q3

REPORT INFORMATION
  Report Type: Spontaneous
  Country: US (occurrence: None)
  Receive Date: 20220616
  Receipt Date: 20220706
  Transmission Date: 20221027
  Serious: No
  Sender: FDA-Public Use
  Company Number: 2022A218319

PATIENT
  Age: 12253 Day
  Sex: Female
  Weight: 94.3 kg

DRUGS (3)
  1. SAPHNELO [Suspect]
     Active Substance: ANIFROLUMAB-FNIA
     Indication: Systemic lupus erythematosus
     Route: 042
     Dates: start: 20220411
  2. ACETAMINOPHEN [Concomitant]
     Active Substance: ACETAMINOPHEN
     Dosage: 2 TABLETS1000.0MG UNKNOWN
     Route: 048
  3. LORATADINE [Concomitant]
     Active Substance: LORATADINE

REACTIONS (5)
  - SARS-CoV-2 test negative [Unknown]
  - Cough [Unknown]
  - Retching [Unknown]
  - Vomiting [Unknown]
  - Respiratory tract infection [Unknown]

NARRATIVE: CASE EVENT DATE: 20220603
